FAERS Safety Report 4430711-3 (Version None)
Quarter: 2004Q3

REPORT INFORMATION
  Report Type: 
  Country: None (occurrence: None)
  Receive Date: 20040721
  Receipt Date: 20040128
  Transmission Date: 20050211
  Serious: Yes (Other)
  Sender: FDA-Public Use
  Company Number: WAES 0401USA02115

PATIENT
  Age: 80 Year
  Sex: Male

DRUGS (1)
  1. VIOXX [Suspect]
     Indication: OSTEOARTHRITIS
     Dosage: 12.5 MG/DAILY/PO
     Route: 048
     Dates: end: 20040121

REACTIONS (1)
  - RENAL FAILURE [None]
